FAERS Safety Report 5708240-6 (Version None)
Quarter: 2008Q2

REPORT INFORMATION
  Report Type: 
  Country: None (occurrence: None)
  Receive Date: 20080417
  Receipt Date: 20080408
  Transmission Date: 20081010
  Serious: Yes (Hospitalization)
  Sender: FDA-Public Use
  Company Number: JP-ROCHE-553287

PATIENT
  Sex: Male
  Weight: 47 kg

DRUGS (17)
  1. PEGASYS [Suspect]
     Route: 058
     Dates: start: 20070518, end: 20080208
  2. URSO 250 [Concomitant]
     Dosage: FORM REPORTED AS ORAL FORMULATION (NOS)
     Route: 048
     Dates: start: 20040625
  3. PROHEPARUM [Concomitant]
     Route: 048
     Dates: start: 20060317
  4. PROHEPARUM [Concomitant]
     Route: 048
     Dates: start: 20060317
  5. PROHEPARUM [Concomitant]
     Route: 048
     Dates: start: 20060317
  6. PROHEPARUM [Concomitant]
     Route: 048
     Dates: start: 20060317
  7. PROHEPARUM [Concomitant]
     Route: 048
     Dates: start: 20060317
  8. FAMOTIDINE [Concomitant]
     Route: 048
     Dates: start: 20051105
  9. PL [Concomitant]
     Route: 048
     Dates: start: 20080111, end: 20080114
  10. PL [Concomitant]
     Route: 048
     Dates: start: 20080111, end: 20080114
  11. PL [Concomitant]
     Route: 048
     Dates: start: 20080111, end: 20080114
  12. PL [Concomitant]
     Route: 048
     Dates: start: 20080111, end: 20080114
  13. CLARITHROMYCIN [Concomitant]
     Route: 048
     Dates: start: 20080111, end: 20080114
  14. LOXONIN [Concomitant]
     Route: 048
     Dates: start: 20080111, end: 20080114
  15. MEDICON [Concomitant]
     Route: 048
     Dates: start: 20080208, end: 20080215
  16. METHYLEPHEDRINE [Concomitant]
     Route: 048
     Dates: start: 20080208, end: 20080215
  17. BROCIN [Concomitant]
     Route: 048
     Dates: start: 20080208, end: 20080215

REACTIONS (1)
  - PULMONARY TUBERCULOSIS [None]
